FAERS Safety Report 15737550 (Version 8)
Quarter: 2019Q1

REPORT INFORMATION
  Report Type: Report from Study
  Country: None (occurrence: GB)
  Receive Date: 20181219
  Receipt Date: 20190321
  Transmission Date: 20190417
  Serious: Yes (Hospitalization)
  Sender: FDA-Public Use
  Company Number: GB-ABBVIE-18S-167-2596049-00

PATIENT
  Age: 60 Year
  Sex: Male

DRUGS (1)
  1. DUODOPA [Suspect]
     Active Substance: CARBIDOPA\LEVODOPA
     Indication: PARKINSON^S DISEASE
     Dosage: 5MG/1ML; 20MG/1ML; 100 ML CASSETTE ONCE DAILY ASD
     Route: 050

REACTIONS (7)
  - Dyspnoea [Unknown]
  - Vocal cord paralysis [Unknown]
  - Tracheostomy [Recovering/Resolving]
  - Device issue [Unknown]
  - Medical device removal [Unknown]
  - Infection [Unknown]
  - Incontinence [Unknown]

NARRATIVE: CASE EVENT DATE: 2018
